FAERS Safety Report 11191505 (Version 1)
Quarter: 2015Q2

REPORT INFORMATION
  Report Type: Report from Study
  Country: CA (occurrence: CA)
  Receive Date: 20150616
  Receipt Date: 20150616
  Transmission Date: 20150821
  Serious: Yes (Hospitalization, Other)
  Sender: FDA-Public Use
  Company Number: CA-AMGEN-CANSL2015057890

PATIENT
  Age: 58 Year
  Sex: Female

DRUGS (2)
  1. METFORMIN [Concomitant]
     Active Substance: METFORMIN HYDROCHLORIDE
     Dosage: UNK
  2. ENBREL [Suspect]
     Active Substance: ETANERCEPT
     Indication: PSORIATIC ARTHROPATHY
     Dosage: 50 MG, UNK
     Route: 065
     Dates: start: 20050915, end: 201502

REACTIONS (6)
  - Pneumonia [Unknown]
  - Herpes zoster [Unknown]
  - Immunodeficiency [Unknown]
  - Sepsis [Unknown]
  - Arthritis [Unknown]
  - Cellulitis [Unknown]

NARRATIVE: CASE EVENT DATE: 2012
